FAERS Safety Report 7380670-9 (Version None)
Quarter: 2011Q1

REPORT INFORMATION
  Report Type: 
  Country: None (occurrence: None)
  Receive Date: 20110329
  Receipt Date: 20110317
  Transmission Date: 20110831
  Serious: Yes (Other)
  Sender: FDA-Public Use
  Company Number: US-BAXTER-2011BH007929

PATIENT
  Sex: Female

DRUGS (9)
  1. ANTIEMETICS AND ANTINAUSEANTS [Concomitant]
     Indication: PROPHYLAXIS OF NAUSEA AND VOMITING
     Route: 042
  2. MESNA [Suspect]
     Route: 048
  3. CIMETIDINE [Concomitant]
     Indication: PREMEDICATION
     Route: 042
  4. IFOSFAMIDE [Suspect]
     Indication: CERVIX CARCINOMA STAGE IV
     Route: 065
  5. CARBOPLATIN [Suspect]
     Indication: CERVIX CARCINOMA STAGE IV
     Route: 065
  6. PACLITAXEL [Suspect]
     Indication: CERVIX CARCINOMA STAGE IV
     Route: 065
  7. DEXAMETHASONE [Concomitant]
     Indication: PREMEDICATION
     Route: 048
  8. MESNA [Suspect]
     Indication: CERVIX CARCINOMA STAGE IV
     Route: 042
  9. DIPHENHYDRAMINE HCL [Concomitant]
     Indication: PREMEDICATION
     Route: 042

REACTIONS (1)
  - ANAEMIA [None]
